FAERS Safety Report 22644353 (Version 4)
Quarter: 2024Q1

REPORT INFORMATION
  Report Type: Spontaneous
  Country: BR (occurrence: BR)
  Receive Date: 20230627
  Receipt Date: 20240122
  Transmission Date: 20240410
  Serious: Yes (Hospitalization, Other)
  Sender: FDA-Public Use
  Company Number: BR-GLAXOSMITHKLINE-BR2016GSK053674

PATIENT

DRUGS (9)
  1. BENLYSTA [Suspect]
     Active Substance: BELIMUMAB
     Indication: Systemic lupus erythematosus
     Dosage: UNK (3 OF 120 MG, 1 BOTTLE OF 400MG)
     Route: 042
     Dates: start: 20160130
  2. DIPYRONE [Suspect]
     Active Substance: DIPYRONE
     Indication: Pain
     Dosage: UNK
  3. DIPYRONE [Suspect]
     Active Substance: DIPYRONE
     Indication: Pyrexia
  4. ACETAMINOPHEN\CODEINE PHOSPHATE [Suspect]
     Active Substance: ACETAMINOPHEN\CODEINE PHOSPHATE
     Indication: Product used for unknown indication
     Dosage: UNK
  5. DOXYCYCLINE [Suspect]
     Active Substance: DOXYCYCLINE
     Indication: Product used for unknown indication
     Dosage: UNK
  6. OMEPRAZOLE [Suspect]
     Active Substance: OMEPRAZOLE
     Indication: Product used for unknown indication
     Dosage: UNK
  7. PREDNISONE [Concomitant]
     Active Substance: PREDNISONE
     Indication: Product used for unknown indication
     Dosage: 20 MG, UNK
  8. ACETAMINOPHEN [Concomitant]
     Active Substance: ACETAMINOPHEN
     Indication: Pain
     Dosage: UNK
  9. ACETAMINOPHEN [Concomitant]
     Active Substance: ACETAMINOPHEN
     Indication: Pyrexia

REACTIONS (32)
  - Gallbladder disorder [Unknown]
  - Cholecystectomy [Unknown]
  - Diabetes mellitus [Recovered/Resolved]
  - Systemic lupus erythematosus [Unknown]
  - Nodule [Unknown]
  - Pain in extremity [Unknown]
  - Inflammation [Unknown]
  - Malaise [Unknown]
  - Weight decreased [Unknown]
  - Influenza [Unknown]
  - Cough [Not Recovered/Not Resolved]
  - Rhinorrhoea [Not Recovered/Not Resolved]
  - Abdominal pain [Unknown]
  - Candida infection [Unknown]
  - Immune system disorder [Unknown]
  - Skin irritation [Unknown]
  - Dry skin [Unknown]
  - Pain [Unknown]
  - Cholelithiasis [Recovered/Resolved]
  - Dysuria [Recovered/Resolved]
  - Urinary tract infection [Recovered/Resolved]
  - Chromaturia [Recovered/Resolved]
  - Abdominal pain lower [Recovered/Resolved]
  - Back pain [Recovered/Resolved]
  - Pyrexia [Recovered/Resolved]
  - Umbilical hernia [Unknown]
  - Off label use [Recovered/Resolved]
  - Product availability issue [Unknown]
  - Incorrect product administration duration [Unknown]
  - Circumstance or information capable of leading to medication error [Recovered/Resolved]
  - Inappropriate schedule of product administration [Recovered/Resolved]
  - Product dose omission issue [Unknown]

NARRATIVE: CASE EVENT DATE: 20180101
